FAERS Safety Report 10838187 (Version 1)
Quarter: 2015Q1

REPORT INFORMATION
  Report Type: Report from Study
  Country: US (occurrence: US)
  Receive Date: 20150219
  Receipt Date: 20150219
  Transmission Date: 20150721
  Serious: No
  Sender: FDA-Public Use
  Company Number: US-ABBVIE-14P-163-1231784-00

PATIENT
  Age: 67 Year
  Sex: Female
  Weight: 86.26 kg

DRUGS (1)
  1. HUMIRA [Suspect]
     Active Substance: ADALIMUMAB
     Indication: PSORIASIS
     Dates: start: 20140401, end: 20140401

REACTIONS (3)
  - Rash [Not Recovered/Not Resolved]
  - Incorrect dose administered [Recovered/Resolved]
  - Wrong technique in drug usage process [Recovered/Resolved]

NARRATIVE: CASE EVENT DATE: 20140401
